FAERS Safety Report 23366889 (Version 2)
Quarter: 2024Q1

REPORT INFORMATION
  Report Type: Spontaneous
  Country: US (occurrence: US)
  Receive Date: 20240104
  Receipt Date: 20240315
  Transmission Date: 20240410
  Serious: Yes (Other)
  Sender: FDA-Public Use
  Company Number: US-Eisai-EC-2023-154029

PATIENT
  Age: 62 Year
  Sex: Male
  Weight: 73.57 kg

DRUGS (7)
  1. LEQEMBI [Suspect]
     Active Substance: LECANEMAB-IRMB
     Indication: Dementia Alzheimer^s type
     Route: 041
     Dates: start: 20230823, end: 20231129
  2. ARICEPT [Concomitant]
     Active Substance: DONEPEZIL HYDROCHLORIDE
     Route: 048
  3. THIAMINE [Concomitant]
     Active Substance: THIAMINE
     Route: 048
  4. CLONAZEPAM [Concomitant]
     Active Substance: CLONAZEPAM
     Route: 048
  5. CYMBALTA [Concomitant]
     Active Substance: DULOXETINE HYDROCHLORIDE
     Route: 048
  6. MIRTAZAPINE [Concomitant]
     Active Substance: MIRTAZAPINE
     Route: 048
  7. FLOMAX [Concomitant]
     Active Substance: TAMSULOSIN HYDROCHLORIDE
     Route: 048

REACTIONS (6)
  - Screaming [Recovered/Resolved]
  - Gait disturbance [Recovered/Resolved]
  - Peripheral coldness [Recovered/Resolved]
  - Asthenia [Not Recovered/Not Resolved]
  - Confusional state [Recovered/Resolved]
  - Fatigue [Not Recovered/Not Resolved]

NARRATIVE: CASE EVENT DATE: 20231119
